FAERS Safety Report 5469215-8 (Version None)
Quarter: 2007Q3

REPORT INFORMATION
  Report Type: 
  Country: None (occurrence: None)
  Receive Date: 20070927
  Receipt Date: 20070920
  Transmission Date: 20080115
  Serious: Yes (Other)
  Sender: FDA-Public Use
  Company Number: AU-JNJFOC-20070804821

PATIENT
  Sex: Female
  Weight: 64 kg

DRUGS (3)
  1. REMICADE [Suspect]
     Dosage: SECOND DOSE
  2. REMICADE [Suspect]
     Indication: CROHN'S DISEASE
     Dosage: FIRST DOSE
  3. HYDROCORTISONE [Concomitant]
     Indication: PREMEDICATION
     Route: 042

REACTIONS (5)
  - ANGIOEDEMA [None]
  - HYPERSENSITIVITY [None]
  - HYPOTENSION [None]
  - HYPOXIA [None]
  - INFUSION RELATED REACTION [None]
